FAERS Safety Report 4518462-8 (Version None)
Quarter: 2004Q4

REPORT INFORMATION
  Report Type: 
  Country: None (occurrence: None)
  Receive Date: 20041202
  Receipt Date: 20041116
  Transmission Date: 20050328
  Serious: Yes (Life-Threatening)
  Sender: FDA-Public Use
  Company Number: 2004BL008458

PATIENT
  Sex: Female

DRUGS (1)
  1. ALBUTEROL SULFATE [Suspect]
     Dosage: OROPHARYNGEAL
     Route: 049
     Dates: start: 20040101, end: 20040101

REACTIONS (1)
  - ANAPHYLACTIC REACTION [None]
